FAERS Safety Report 4788981-8 (Version None)
Quarter: 2005Q3

REPORT INFORMATION
  Report Type: 
  Country: None (occurrence: None)
  Receive Date: 20050929
  Receipt Date: 20050214
  Transmission Date: 20060218
  Serious: Yes (Other)
  Sender: FDA-Public Use
  Company Number: 601271

PATIENT
  Age: 1 Year
  Sex: Male
  Weight: 11 kg

DRUGS (2)
  1. ADVATE [Suspect]
     Indication: FACTOR VIII DEFICIENCY
     Dosage: 691 IU; 3X A WEEK; IV
     Route: 042
     Dates: start: 20040421, end: 20040518
  2. ADVATE [Suspect]

REACTIONS (3)
  - PLASMIN INHIBITOR INCREASED [None]
  - PYREXIA [None]
  - RECTAL HAEMORRHAGE [None]
